FAERS Safety Report 11337047 (Version 1)
Quarter: 2015Q3

REPORT INFORMATION
  Report Type: Spontaneous
  Country: US (occurrence: US)
  Receive Date: 20150804
  Receipt Date: 20150804
  Transmission Date: 20151125
  Serious: No
  Sender: FDA-Public Use
  Company Number: US-PRINSTON PHARMACEUTICAL INC.-2015RIS00059

PATIENT
  Age: 69 Year
  Sex: Male
  Weight: 87.53 kg

DRUGS (6)
  1. CARVEDILOL (UNSPECIFIED MANUFACTURER) [Suspect]
     Active Substance: CARVEDILOL
     Dosage: 3.125 MG, 2X/DAY
     Dates: start: 20150324
  2. BABY ASPIRIN [Concomitant]
     Active Substance: ASPIRIN
     Dosage: UNK, 1X/DAY
  3. LOVASTATIN. [Concomitant]
     Active Substance: LOVASTATIN
     Dosage: 40 MG, 1X/DAY
  4. BRILINTA [Concomitant]
     Active Substance: TICAGRELOR
     Dosage: 40 MG, 2X/DAY
  5. LOSARTAN POTASSIUM. [Suspect]
     Active Substance: LOSARTAN POTASSIUM
     Indication: MYOCARDIAL INFARCTION
     Dosage: 25 MG, 1X/DAY
     Route: 048
     Dates: start: 20150323, end: 20150408
  6. CARVEDILOL (UNSPECIFIED MANUFACTURER) [Suspect]
     Active Substance: CARVEDILOL
     Dosage: 6.25 MG, 2X/DAY
     Dates: start: 20150323, end: 20150324

REACTIONS (5)
  - Drug intolerance [Unknown]
  - Vision blurred [Recovering/Resolving]
  - Feeling abnormal [Recovering/Resolving]
  - Headache [Recovering/Resolving]
  - Nausea [Recovering/Resolving]

NARRATIVE: CASE EVENT DATE: 2015
